FAERS Safety Report 6177951-3 (Version None)
Quarter: 2009Q2

REPORT INFORMATION
  Report Type: 
  Country: None (occurrence: None)
  Receive Date: 20090504
  Receipt Date: 20090423
  Transmission Date: 20091009
  Serious: Yes (Other)
  Sender: FDA-Public Use
  Company Number: BE-MERCK-0904USA04268

PATIENT
  Age: 54 Year
  Sex: Female

DRUGS (7)
  1. PRINIVIL [Suspect]
     Route: 048
  2. WARFARIN SODIUM [Suspect]
     Indication: PROPHYLAXIS
     Route: 065
  3. ATORVASTATIN CALCIUM [Concomitant]
     Route: 065
  4. CARVEDILOL [Concomitant]
     Route: 065
  5. AMIODARONA [Concomitant]
     Route: 065
  6. SPIRONOLACTONE [Concomitant]
     Route: 065
  7. ALLOPURINOL [Concomitant]
     Route: 048

REACTIONS (1)
  - CALCIPHYLAXIS [None]
